FAERS Safety Report 25750655 (Version 1)
Quarter: 2025Q3

REPORT INFORMATION
  Report Type: Spontaneous
  Country: US (occurrence: None)
  Receive Date: 20250830
  Receipt Date: 20250830
  Transmission Date: 20251020
  Serious: Yes (Other)
  Sender: FDA-CTU
  Company Number: None

PATIENT
  Age: 70 Year
  Sex: Female

DRUGS (6)
  1. 5-(4-((2S,5S)-5-(4-CHLOROBENZYL)-2-METHYLMORPHOLINO)PIPERIDIN-1-YL)-1H [Suspect]
     Active Substance: 5-(4-((2S,5S)-5-(4-CHLOROBENZYL)-2-METHYLMORPHOLINO)PIPERIDIN-1-YL)-1H-1,2,4-TRIAZOL-3-AMINE
     Indication: Weight decreased
     Route: 058
     Dates: start: 20240831, end: 20250312
  2. Bupropion 300 mg daily [Concomitant]
  3. Prevastatin 40mg daily [Concomitant]
  4. Progesterone 200 mg daily [Concomitant]
  5. CALCIUM [Concomitant]
     Active Substance: CALCIUM
  6. COENZYME Q10 [Concomitant]
     Active Substance: DIETARY SUPPLEMENT\UBIDECARENONE

REACTIONS (2)
  - Retinal detachment [None]
  - Blindness [None]

NARRATIVE: CASE EVENT DATE: 20250317
